FAERS Safety Report 7195615-4 (Version None)
Quarter: 2010Q4

REPORT INFORMATION
  Report Type: 
  Country: None (occurrence: None)
  Receive Date: 20101223
  Receipt Date: 20101220
  Transmission Date: 20110411
  Serious: No
  Sender: FDA-Public Use
  Company Number: ES-MERCK-1009ESP00008

PATIENT
  Age: 24 Month
  Sex: Male

DRUGS (5)
  1. SINGULAIR [Suspect]
     Indication: ASTHMA
     Route: 048
     Dates: start: 20080423, end: 20080520
  2. SINGULAIR [Suspect]
     Route: 048
     Dates: start: 20080915, end: 20080922
  3. SINGULAIR [Suspect]
     Indication: BRONCHITIS
     Route: 048
     Dates: start: 20080423, end: 20080520
  4. SINGULAIR [Suspect]
     Route: 048
     Dates: start: 20080915, end: 20080922
  5. BUDESONIDE [Concomitant]
     Indication: ASTHMA
     Route: 055
     Dates: start: 20080423, end: 20080507

REACTIONS (1)
  - CONSTIPATION [None]
